FAERS Safety Report 8215682-6 (Version None)
Quarter: 2012Q1

REPORT INFORMATION
  Report Type: 
  Country: None (occurrence: None)
  Receive Date: 20120316
  Receipt Date: 20120309
  Transmission Date: 20120608
  Serious: Yes (Other)
  Sender: FDA-Public Use
  Company Number: US-PFIZER INC-2012064510

PATIENT
  Sex: Female

DRUGS (12)
  1. CELEXA [Concomitant]
     Dosage: 40 MG, UNK
  2. TOPROL-XL [Concomitant]
     Dosage: 50 MG, 24 HR TABLET
  3. FLEXERIL [Concomitant]
     Dosage: 10 MG, UNK
  4. VITAMIN D [Concomitant]
     Dosage: 50000 UNIT CAPSULE
  5. ULTRAM [Concomitant]
     Dosage: 50 MG, UNK
  6. BONIVA [Concomitant]
     Dosage: 150 MG, UNK
  7. DETROL LA [Suspect]
     Dosage: 4 MG, 24 HR CAPSULE
  8. DESYREL [Concomitant]
     Dosage: 50 MG, UNK
  9. CYANOCOBALAMIN [Concomitant]
     Dosage: 1000 UG, UNK
  10. CYMBALTA [Concomitant]
     Dosage: 30 MG, UNK
  11. MEVACOR [Concomitant]
     Dosage: 10 MG, UNK
  12. VITAMIN D [Concomitant]
     Dosage: 2000 UNIT TABLET

REACTIONS (11)
  - VITAMIN D DEFICIENCY [None]
  - BACK PAIN [None]
  - ANXIETY DISORDER [None]
  - ESSENTIAL HYPERTENSION [None]
  - VITAMIN B12 DEFICIENCY [None]
  - INSOMNIA [None]
  - DEPRESSION [None]
  - FIBROMYALGIA [None]
  - HYPERTONIC BLADDER [None]
  - ARTHRALGIA [None]
  - NECK PAIN [None]
